FAERS Safety Report 5806124-6 (Version None)
Quarter: 2008Q3

REPORT INFORMATION
  Report Type: 
  Country: None (occurrence: None)
  Receive Date: 20080710
  Receipt Date: 20080630
  Transmission Date: 20090109
  Serious: Yes (Hospitalization, Disabling, Other)
  Sender: FDA-Public Use
  Company Number: US-MERCK-0712USA08946

PATIENT
  Age: 55 Year
  Sex: Female
  Weight: 69 kg

DRUGS (5)
  1. FOSAMAX [Suspect]
     Indication: OSTEOPOROSIS
     Route: 048
     Dates: start: 20000228, end: 20060101
  2. FOSAMAX [Suspect]
     Route: 048
     Dates: end: 20070611
  3. VIOXX [Concomitant]
     Route: 048
  4. PROZAC [Concomitant]
     Indication: DEPRESSION
     Route: 065
  5. ATIVAN [Concomitant]
     Route: 065

REACTIONS (28)
  - ANAEMIA [None]
  - ANXIETY DISORDER [None]
  - ARTHROPATHY [None]
  - BARRETT'S OESOPHAGUS [None]
  - DELIRIUM [None]
  - DEPRESSION [None]
  - DIAPHRAGMATIC HERNIA [None]
  - DISSOCIATIVE IDENTITY DISORDER [None]
  - DRUG ABUSE [None]
  - EXOSTOSIS [None]
  - GINGIVAL ABSCESS [None]
  - GLOSSITIS [None]
  - HEADACHE [None]
  - HYPONATRAEMIA [None]
  - INSOMNIA [None]
  - IRON DEFICIENCY ANAEMIA [None]
  - NUMB CHIN SYNDROME [None]
  - OSTEOMYELITIS [None]
  - OSTEONECROSIS [None]
  - PAIN [None]
  - RIB FRACTURE [None]
  - SINUSITIS [None]
  - SMALL INTESTINAL OBSTRUCTION [None]
  - SOMNAMBULISM [None]
  - SPINAL COMPRESSION FRACTURE [None]
  - SUBSTANCE ABUSE [None]
  - WEIGHT DECREASED [None]
  - WITHDRAWAL SYNDROME [None]
